FAERS Safety Report 19396856 (Version 1)
Quarter: 2021Q2

REPORT INFORMATION
  Report Type: Spontaneous
  Country: US (occurrence: US)
  Receive Date: 20210610
  Receipt Date: 20210610
  Transmission Date: 20210717
  Serious: No
  Sender: FDA-Public Use
  Company Number: US-UCBSA-2021019432

PATIENT
  Age: 16 Year
  Sex: Female

DRUGS (2)
  1. NAYZILAM [Suspect]
     Active Substance: MIDAZOLAM
     Indication: GENERALISED TONIC-CLONIC SEIZURE
     Dosage: UNK
  2. NAYZILAM [Suspect]
     Active Substance: MIDAZOLAM
     Indication: OFF LABEL USE

REACTIONS (1)
  - No adverse event [Unknown]
